FAERS Safety Report 8302740-0 (Version None)
Quarter: 2012Q2

REPORT INFORMATION
  Report Type: 
  Country: None (occurrence: None)
  Receive Date: 20120420
  Receipt Date: 20120410
  Transmission Date: 20120825
  Serious: Yes (Hospitalization, Other)
  Sender: FDA-Public Use
  Company Number: JP-ELI_LILLY_AND_COMPANY-JP201204003640

PATIENT
  Sex: Male

DRUGS (8)
  1. BYETTA [Suspect]
     Dosage: 10 UG, UNK
     Route: 058
     Dates: end: 20120301
  2. METFORMIN HYDROCHLORIDE [Concomitant]
     Dosage: UNK
     Route: 048
     Dates: start: 20120301
  3. BYETTA [Suspect]
     Dosage: 5 UG, UNK
     Route: 058
     Dates: start: 20120301
  4. AMARYL [Concomitant]
     Indication: DIABETES MELLITUS
     Dosage: 0.5 MG, UNK
     Route: 048
  5. BYETTA [Suspect]
     Indication: DIABETES MELLITUS
     Route: 058
  6. BYETTA [Suspect]
     Dosage: 10 UG, UNK
     Route: 058
  7. AMARYL [Concomitant]
     Dosage: 1 MG, UNK
     Route: 048
     Dates: end: 20120301
  8. METFORMIN HYDROCHLORIDE [Concomitant]
     Indication: DIABETES MELLITUS
     Dosage: UNK
     Route: 048
     Dates: end: 20110901

REACTIONS (6)
  - DIABETES MELLITUS INADEQUATE CONTROL [None]
  - BLOOD GLUCOSE INCREASED [None]
  - LIVER FUNCTION TEST ABNORMAL [None]
  - NAUSEA [None]
  - OFF LABEL USE [None]
  - ABDOMINAL DISCOMFORT [None]
